FAERS Safety Report 5356957-8 (Version None)
Quarter: 2007Q2

REPORT INFORMATION
  Report Type: 
  Country: None (occurrence: None)
  Receive Date: 20070530
  Receipt Date: 20061110
  Transmission Date: 20071010
  Serious: Yes (Hospitalization)
  Sender: FDA-Public Use
  Company Number: US200608002616

PATIENT
  Age: 57 Year
  Sex: Male
  Weight: 106.6 kg

DRUGS (3)
  1. ZYPREXA [Suspect]
     Dates: start: 20010401, end: 20040101
  2. ABILIFY [Concomitant]
  3. PREDNISONE TAB [Concomitant]

REACTIONS (5)
  - DEHYDRATION [None]
  - DIABETES MELLITUS NON-INSULIN-DEPENDENT [None]
  - METABOLIC DISORDER [None]
  - POLYURIA [None]
  - WEIGHT DECREASED [None]
